FAERS Safety Report 6806093-6 (Version None)
Quarter: 2010Q2

REPORT INFORMATION
  Report Type: 
  Country: None (occurrence: None)
  Receive Date: 20100629
  Receipt Date: 20100621
  Transmission Date: 20101027
  Serious: Yes (Life-Threatening, Other)
  Sender: FDA-Public Use
  Company Number: US-AMGEN-QUU405961

PATIENT
  Sex: Female
  Weight: 81 kg

DRUGS (9)
  1. NPLATE [Suspect]
     Indication: IDIOPATHIC THROMBOCYTOPENIC PURPURA
     Dates: start: 20091001, end: 20100517
  2. CORTICOSTEROIDS [Concomitant]
     Dates: start: 20050901
  3. IMMU-G [Concomitant]
     Dates: start: 20051020
  4. DAPSONE [Concomitant]
  5. ACYCLOVIR [Concomitant]
  6. HYDROXYCHLOROQUINE [Concomitant]
  7. LEVOXYL [Concomitant]
  8. METOPROLOL [Concomitant]
  9. MEPRON [Concomitant]

REACTIONS (4)
  - METHAEMOGLOBINAEMIA [None]
  - PLATELET COUNT ABNORMAL [None]
  - THROMBOCYTOPENIA [None]
  - VENOUS THROMBOSIS LIMB [None]
